FAERS Safety Report 16120513 (Version 1)
Quarter: 2019Q1

REPORT INFORMATION
  Report Type: Report from Study
  Country: None (occurrence: US)
  Receive Date: 20190326
  Receipt Date: 20190326
  Transmission Date: 20190418
  Serious: Yes (Other)
  Sender: FDA-Public Use
  Company Number: US-ABBVIE-19K-163-2717044-00

PATIENT
  Age: 60 Year
  Sex: Female

DRUGS (1)
  1. HUMIRA [Suspect]
     Active Substance: ADALIMUMAB
     Indication: RHEUMATOID ARTHRITIS
     Route: 058

REACTIONS (6)
  - Medical device implantation [Not Recovered/Not Resolved]
  - Spinal deformity [Not Recovered/Not Resolved]
  - Depression [Recovered/Resolved]
  - Inflammatory pain [Recovering/Resolving]
  - Device damage [Not Recovered/Not Resolved]
  - Grip strength decreased [Recovered/Resolved]

NARRATIVE: CASE EVENT DATE: 201903
